FAERS Safety Report 7531312-0 (Version None)
Quarter: 2011Q2

REPORT INFORMATION
  Report Type: 
  Country: None (occurrence: None)
  Receive Date: 20110531
  Receipt Date: 20110520
  Transmission Date: 20111010
  Serious: Yes (Hospitalization)
  Sender: FDA-Public Use
  Company Number: 1000020946

PATIENT
  Age: 51 Year
  Sex: Female

DRUGS (9)
  1. PAROXETINE HCL [Suspect]
     Dosage: 40 MG (40 MG,1 IN 1 D)
  2. ALPRAZOLAM [Suspect]
     Dosage: 1.5 MG (1.5 MG,1 IN 1 D)
  3. FLUPHENAZINE [Suspect]
     Dosage: 3 MG (3 MG,1 IN 1 D)
  4. CITALOPRAM HYDROBROMIDE [Suspect]
     Dosage: 30 MG (30 MG,1 IN 1 D)
  5. CITALOPRAM HYDROBROMIDE [Suspect]
     Dosage: 20 MG (20 MG,1 IN 1 D)
  6. LAMOTRIGINE [Suspect]
     Dosage: 200 MG (200 MG,1 IN 1 D)
  7. ZOLPIDEM [Suspect]
  8. AMISULPRIDE (AMISULPRIDE) [Suspect]
     Dosage: 600 MG (600 MG, IN 1 D)
  9. QUETIAPINE FUMARATE [Suspect]
     Dosage: 600 MG (600 MG,1 IN 1 D)

REACTIONS (4)
  - DEPRESSION [None]
  - ANXIETY [None]
  - MENTAL DISORDER [None]
  - GALACTORRHOEA [None]
